FAERS Safety Report 4575851-3 (Version None)
Quarter: 2005Q1

REPORT INFORMATION
  Report Type: 
  Country: None (occurrence: None)
  Receive Date: 20050209
  Receipt Date: 20050131
  Transmission Date: 20050727
  Serious: Yes (Other)
  Sender: FDA-Public Use
  Company Number: US-AMGEN-US110770

PATIENT
  Sex: Male
  Weight: 94.4 kg

DRUGS (3)
  1. ENBREL [Suspect]
     Indication: PSORIASIS
     Route: 058
     Dates: start: 20041117, end: 20041225
  2. ALLOPURINOL [Concomitant]
  3. LOTREL (NOVARTIS PHARMACEUTICALS) [Concomitant]

REACTIONS (2)
  - ALANINE AMINOTRANSFERASE INCREASED [None]
  - LEUKOPENIA [None]
